FAERS Safety Report 4808581-0 (Version None)
Quarter: 2005Q4

REPORT INFORMATION
  Report Type: 
  Country: None (occurrence: None)
  Receive Date: 20051025
  Receipt Date: 20051013
  Transmission Date: 20060501
  Serious: Yes (Other)
  Sender: FDA-Public Use
  Company Number: US-GLAXOSMITHKLINE-B0397051A

PATIENT
  Age: 23 Year
  Sex: Female

DRUGS (3)
  1. LAMOTRIGINE [Suspect]
     Indication: SCHIZOPHRENIA
     Dosage: 12.5MG TWICE PER DAY
     Route: 065
  2. QUETIAPINE FUMARATE [Concomitant]
     Indication: SCHIZOPHRENIA
     Route: 065
  3. DIVALPROEX SODIUM [Concomitant]
     Indication: SCHIZOPHRENIA
     Route: 065

REACTIONS (4)
  - AFFECT LABILITY [None]
  - PSYCHOTIC DISORDER [None]
  - THINKING ABNORMAL [None]
  - VERBIGERATION [None]
